FAERS Safety Report 4745889-1 (Version None)
Quarter: 2005Q3

REPORT INFORMATION
  Report Type: 
  Country: None (occurrence: None)
  Receive Date: 20050816
  Receipt Date: 20050809
  Transmission Date: 20060218
  Serious: Yes (Other)
  Sender: FDA-Public Use
  Company Number: PHEH2005US08811

PATIENT
  Age: 71 Year
  Sex: Female

DRUGS (3)
  1. MOBIC [Concomitant]
  2. PRILOSEC [Concomitant]
  3. ZELNORM [Suspect]
     Indication: IRRITABLE BOWEL SYNDROME
     Dosage: 6 MG, BID
     Route: 048
     Dates: start: 20050729

REACTIONS (5)
  - ABDOMINAL DISTENSION [None]
  - ABDOMINAL PAIN [None]
  - FLATULENCE [None]
  - HAEMATOCHEZIA [None]
  - MUSCLE SPASMS [None]
